FAERS Safety Report 12594751 (Version 1)
Quarter: 2016Q3

REPORT INFORMATION
  Report Type: Spontaneous
  Country: CN (occurrence: CN)
  Receive Date: 20160726
  Receipt Date: 20160726
  Transmission Date: 20161109
  Serious: Yes (Other)
  Sender: FDA-Public Use
  Company Number: CN-ELI_LILLY_AND_COMPANY-CN201607007145

PATIENT
  Age: 65 Year
  Sex: Female
  Weight: 55 kg

DRUGS (7)
  1. HUMULIN 70/30 [Suspect]
     Active Substance: INSULIN HUMAN
     Dosage: 10 IU, EACH EVENING
     Route: 058
     Dates: start: 20150708, end: 20160715
  2. VALSARTAN. [Concomitant]
     Active Substance: VALSARTAN
  3. METFORMIN [Concomitant]
     Active Substance: METFORMIN HYDROCHLORIDE
  4. ACARBOSE. [Concomitant]
     Active Substance: ACARBOSE
  5. HUMULIN 70/30 [Suspect]
     Active Substance: INSULIN HUMAN
     Indication: DIABETES MELLITUS
     Dosage: 16 IU, EACH MORNING
     Route: 058
     Dates: start: 20150708, end: 20160715
  6. AMARYL [Concomitant]
     Active Substance: GLIMEPIRIDE
  7. GINKGO                             /01003101/ [Concomitant]

REACTIONS (5)
  - Injection site pain [Unknown]
  - Hypoglycaemia [Unknown]
  - Lacunar infarction [Unknown]
  - Drug dose omission [Unknown]
  - Weight increased [Unknown]

NARRATIVE: CASE EVENT DATE: 201508
